FAERS Safety Report 7465281-9 (Version None)
Quarter: 2011Q2

REPORT INFORMATION
  Report Type: 
  Country: None (occurrence: None)
  Receive Date: 20110509
  Receipt Date: 20110430
  Transmission Date: 20111010
  Serious: Yes (Other)
  Sender: FDA-Public Use
  Company Number: PHHY2011MX37192

PATIENT
  Age: 82 Year
  Sex: Female

DRUGS (1)
  1. TRILEPTAL [Suspect]
     Indication: EPILEPSY
     Dosage: 3 DF, QD
     Route: 048
     Dates: start: 20110201

REACTIONS (2)
  - BACK PAIN [None]
  - LUMBAR VERTEBRAL FRACTURE [None]
